FAERS Safety Report 9223336 (Version 1)
Quarter: 2013Q2

REPORT INFORMATION
  Report Type: Spontaneous
  Country: AU (occurrence: AU)
  Receive Date: 20130410
  Receipt Date: 20130410
  Transmission Date: 20140414
  Serious: Yes (Other)
  Sender: FDA-Public Use
  Company Number: AU-ABBOTT-13P-008-1071759-00

PATIENT
  Age: 68 Year
  Sex: Female
  Weight: 117 kg

DRUGS (4)
  1. HUMIRA [Suspect]
     Indication: CROHN^S DISEASE
     Dates: start: 20111001
  2. ANTI DEPRESSANTS [Concomitant]
     Indication: PRODUCT USED FOR UNKNOWN INDICATION
  3. UNKNOWN MEDICATION [Concomitant]
     Indication: BLOOD PRESSURE
     Dosage: LOW DOSE
  4. VITAMIN D NOS [Concomitant]
     Indication: PRODUCT USED FOR UNKNOWN INDICATION

REACTIONS (12)
  - Anal fissure [Unknown]
  - Photosensitivity reaction [Unknown]
  - Rash macular [Unknown]
  - Skin lesion [Unknown]
  - Emotional distress [Unknown]
  - Abdominal pain lower [Unknown]
  - Haemangioma of skin [Unknown]
  - Pain [Unknown]
  - Back pain [Unknown]
  - Systemic lupus erythematosus [Unknown]
  - Skin burning sensation [Unknown]
  - Gastrointestinal disorder [Unknown]
